FAERS Safety Report 12826644 (Version 1)
Quarter: 2016Q4

REPORT INFORMATION
  Report Type: Report from Study
  Country: None (occurrence: DE)
  Receive Date: 20161006
  Receipt Date: 20161006
  Transmission Date: 20170207
  Serious: Yes (Hospitalization, Other)
  Sender: FDA-Public Use
  Company Number: DE-ABBVIE-16P-062-1702188-00

PATIENT
  Age: 79 Year
  Sex: Female

DRUGS (20)
  1. CALCIUM [Concomitant]
     Active Substance: CALCIUM
     Dosage: PAUSED
     Dates: start: 201608, end: 201608
  2. VITAMIN B12 [Concomitant]
     Active Substance: CYANOCOBALAMIN
     Indication: PRODUCT USED FOR UNKNOWN INDICATION
     Dates: end: 201608
  3. MADOPAR DEPOT [Concomitant]
     Active Substance: BENSERAZIDE HYDROCHLORIDE\LEVODOPA
     Indication: PRODUCT USED FOR UNKNOWN INDICATION
  4. VALORON RET [Concomitant]
     Indication: PRODUCT USED FOR UNKNOWN INDICATION
     Dosage: 100/8 MG
     Dates: end: 201608
  5. VITAMINE D [Concomitant]
     Indication: PRODUCT USED FOR UNKNOWN INDICATION
  6. DEKRISTOL [Concomitant]
     Active Substance: CHOLECALCIFEROL
     Indication: PRODUCT USED FOR UNKNOWN INDICATION
  7. RIVOTRIL [Concomitant]
     Active Substance: CLONAZEPAM
     Indication: PRODUCT USED FOR UNKNOWN INDICATION
  8. DUODOPA [Suspect]
     Active Substance: CARBIDOPA\LEVODOPA
     Indication: PARKINSON^S DISEASE
     Dosage: MD 8ML, CRD 1.6ML/H, ED 0.5ML
     Route: 050
     Dates: start: 20150914
  9. VITAMIN B12 [Concomitant]
     Active Substance: CYANOCOBALAMIN
     Route: 058
     Dates: start: 201608
  10. CALCIUM [Concomitant]
     Active Substance: CALCIUM
     Dates: start: 201608
  11. LEVOCOMP RET [Concomitant]
     Indication: PRODUCT USED FOR UNKNOWN INDICATION
     Dosage: 100/25 MG
  12. SIMVASTATIN. [Concomitant]
     Active Substance: SIMVASTATIN
     Indication: PRODUCT USED FOR UNKNOWN INDICATION
  13. SPASMEX [Concomitant]
     Active Substance: TROSPIUM CHLORIDE
     Indication: PRODUCT USED FOR UNKNOWN INDICATION
  14. L THYROXIN [Concomitant]
     Active Substance: LEVOTHYROXINE SODIUM
     Indication: PRODUCT USED FOR UNKNOWN INDICATION
  15. VALORON RET [Concomitant]
     Dosage: UNIT DOSE 50/4 MG ?2-0-1
     Dates: start: 201608
  16. PANTOPRAZOL [Concomitant]
     Active Substance: PANTOPRAZOLE SODIUM
     Indication: PRODUCT USED FOR UNKNOWN INDICATION
  17. CALCIUM [Concomitant]
     Active Substance: CALCIUM
     Indication: PRODUCT USED FOR UNKNOWN INDICATION
     Dates: end: 201608
  18. NEBIVOLOL. [Concomitant]
     Active Substance: NEBIVOLOL
     Indication: PRODUCT USED FOR UNKNOWN INDICATION
     Dosage: 1-0-2
  19. XADAGO [Concomitant]
     Active Substance: SAFINAMIDE
     Indication: PRODUCT USED FOR UNKNOWN INDICATION
  20. DUODOPA [Suspect]
     Active Substance: CARBIDOPA\LEVODOPA
     Dosage: VARYING CR BETWEEN 1.5 ML/H AND 1.9 ML/H
     Route: 050
     Dates: start: 201608, end: 201609

REACTIONS (14)
  - Osteoarthritis [Unknown]
  - Parkinson^s disease [Not Recovered/Not Resolved]
  - Stoma site pain [Unknown]
  - Visual impairment [Unknown]
  - Foot deformity [Unknown]
  - Stoma site erythema [Recovering/Resolving]
  - Hypercalcaemia [Unknown]
  - Stoma site hypergranulation [Recovering/Resolving]
  - Supraventricular extrasystoles [Unknown]
  - Pain [Unknown]
  - Weight decreased [Unknown]
  - Malnutrition [Unknown]
  - Wrist deformity [Unknown]
  - Hyperhomocysteinaemia [Unknown]

NARRATIVE: CASE EVENT DATE: 2016
